FAERS Safety Report 22108728 (Version 3)
Quarter: 2023Q2

REPORT INFORMATION
  Report Type: Spontaneous
  Country: US (occurrence: US)
  Receive Date: 20230317
  Receipt Date: 20230508
  Transmission Date: 20230722
  Serious: No
  Sender: FDA-Public Use
  Company Number: US-PFIZER INC-PV202300047288

PATIENT
  Age: 72 Year
  Sex: Female

DRUGS (1)
  1. ENBREL [Suspect]
     Active Substance: ETANERCEPT
     Indication: Rheumatoid arthritis
     Dosage: UNK
     Route: 065

REACTIONS (16)
  - Drug ineffective [Unknown]
  - Intentional product misuse [Unknown]
  - Joint stiffness [Recovering/Resolving]
  - Synovitis [Unknown]
  - Arthralgia [Recovering/Resolving]
  - Cough [Unknown]
  - Gastrooesophageal reflux disease [Unknown]
  - Joint range of motion decreased [Recovering/Resolving]
  - Joint swelling [Recovering/Resolving]
  - Blood pressure increased [Unknown]
  - Pain [Recovering/Resolving]
  - Dizziness [Unknown]
  - Condition aggravated [Unknown]
  - Malaise [Unknown]
  - Peripheral swelling [Unknown]
  - Pain in extremity [Recovering/Resolving]
